FAERS Safety Report 6771259-0 (Version None)
Quarter: 2010Q2

REPORT INFORMATION
  Report Type: 
  Country: None (occurrence: None)
  Receive Date: 20100616
  Receipt Date: 20100608
  Transmission Date: 20101027
  Serious: Yes (Death)
  Sender: FDA-Public Use
  Company Number: US-PURDUE-USA-2010-0043883

PATIENT
  Age: 57 Year
  Sex: Female

DRUGS (4)
  1. OXYCODONE HCL [Suspect]
     Indication: DRUG USE FOR UNKNOWN INDICATION
  2. ALCOHOL [Suspect]
     Indication: ALCOHOL USE
  3. ACETAMINOPHEN [Suspect]
  4. ANXIOLYTICS [Suspect]
     Indication: ANXIETY

REACTIONS (3)
  - ALCOHOL USE [None]
  - MULTIPLE INJURIES [None]
  - ROAD TRAFFIC ACCIDENT [None]
